FAERS Safety Report 4352077-X (Version None)
Quarter: 2004Q2

REPORT INFORMATION
  Report Type: 
  Country: None (occurrence: None)
  Receive Date: 20040429
  Receipt Date: 20031208
  Transmission Date: 20050107
  Serious: No
  Sender: FDA-Public Use
  Company Number: 2004-113398-NL

PATIENT
  Age: 55 Year
  Sex: Female

DRUGS (7)
  1. NUVARING [Suspect]
     Indication: HOT FLUSH
     Dosage: DF DAILY VAGINAL
     Route: 067
     Dates: start: 20030201
  2. NUVARING [Suspect]
     Indication: MENOPAUSE
     Dosage: DF DAILY VAGINAL
     Route: 067
     Dates: start: 20030201
  3. NUVARING [Suspect]
     Indication: NIGHT SWEATS
     Dosage: DF DAILY VAGINAL
     Route: 067
     Dates: start: 20030201
  4. DIURETIC [Concomitant]
  5. SLOW-K [Concomitant]
  6. NIACIN [Concomitant]
  7. CALCIUM [Concomitant]

REACTIONS (3)
  - MEDICAL DEVICE CHANGE [None]
  - MEDICAL DEVICE COMPLICATION [None]
  - MEDICAL DEVICE DISCOMFORT [None]
